FAERS Safety Report 6778932-9 (Version None)
Quarter: 2010Q2

REPORT INFORMATION
  Report Type: 
  Country: None (occurrence: None)
  Receive Date: 20100618
  Receipt Date: 20100609
  Transmission Date: 20101027
  Serious: Yes (Other)
  Sender: FDA-Public Use
  Company Number: JP-ASTRAZENECA-2010SE28085

PATIENT
  Age: 51 Year
  Sex: Male
  Weight: 65 kg

DRUGS (7)
  1. SEROQUEL [Suspect]
     Indication: DELIRIUM
     Route: 048
  2. SEROQUEL [Suspect]
     Route: 048
  3. SEROQUEL [Suspect]
     Route: 048
  4. SEROQUEL [Suspect]
     Route: 048
  5. CYCLOSPORINE [Concomitant]
     Indication: PROPHYLAXIS AGAINST TRANSPLANT REJECTION
     Route: 048
  6. METHYLPREDNISOLONE [Concomitant]
     Indication: PROPHYLAXIS AGAINST TRANSPLANT REJECTION
     Route: 048
  7. INTERFERON ALFA [Concomitant]
     Indication: TROPICAL SPASTIC PARESIS

REACTIONS (1)
  - CONDITION AGGRAVATED [None]
